FAERS Safety Report 25704103 (Version 1)
Quarter: 2025Q3

REPORT INFORMATION
  Report Type: Spontaneous
  Country: EU (occurrence: EU)
  Receive Date: 20250820
  Receipt Date: 20250820
  Transmission Date: 20251021
  Serious: Yes (Hospitalization)
  Sender: AMGEN
  Company Number: None

PATIENT
  Age: 79 Year
  Sex: Male
  Weight: 71 kg

DRUGS (17)
  1. IVABRADINE [Suspect]
     Active Substance: IVABRADINE
     Indication: Angina pectoris
     Dosage: 2X PER DAY 1 TABLET
     Route: 048
     Dates: start: 20250714, end: 20250727
  2. GLICLAZIDE [Concomitant]
     Active Substance: GLICLAZIDE
     Indication: Product used for unknown indication
     Route: 048
  3. FERROUS FUMARATE [Concomitant]
     Active Substance: FERROUS FUMARATE
     Indication: Product used for unknown indication
     Route: 048
  4. ISOSORBIDE MONONITRATE [Concomitant]
     Active Substance: ISOSORBIDE MONONITRATE
     Indication: Product used for unknown indication
     Route: 048
  5. FOLIC ACID [Concomitant]
     Active Substance: FOLIC ACID
     Indication: Product used for unknown indication
     Route: 048
  6. PANTOPRAZOLE [Concomitant]
     Active Substance: PANTOPRAZOLE
     Indication: Product used for unknown indication
     Route: 048
  7. CLOPIDOGREL [Concomitant]
     Active Substance: CLOPIDOGREL BISULFATE
     Indication: Product used for unknown indication
     Route: 048
  8. MONTELUKAST [Concomitant]
     Active Substance: MONTELUKAST
     Indication: Product used for unknown indication
     Route: 048
  9. DESLORATADINE [Concomitant]
     Active Substance: DESLORATADINE
     Indication: Product used for unknown indication
     Route: 048
  10. METFORMIN [Concomitant]
     Active Substance: METFORMIN HYDROCHLORIDE
     Indication: Product used for unknown indication
     Route: 048
  11. EZETIMIBE [Concomitant]
     Active Substance: EZETIMIBE
     Indication: Product used for unknown indication
     Route: 048
  12. ROSUVASTATIN [Concomitant]
     Active Substance: ROSUVASTATIN
     Indication: Product used for unknown indication
     Route: 048
  13. EMPAGLIFLOZIN [Concomitant]
     Active Substance: EMPAGLIFLOZIN
     Indication: Product used for unknown indication
     Route: 048
  14. BECLOMETHASONE DIPROPIONATE [Concomitant]
     Active Substance: BECLOMETHASONE DIPROPIONATE
     Indication: Product used for unknown indication
     Route: 055
  15. INSULIN ASPART [Concomitant]
     Active Substance: INSULIN ASPART
     Indication: Product used for unknown indication
     Route: 065
  16. INSULIN NOS [Concomitant]
     Active Substance: INSULIN NOS
     Indication: Product used for unknown indication
     Route: 065
  17. MOMETASONE [Concomitant]
     Active Substance: MOMETASONE
     Indication: Product used for unknown indication
     Route: 045

REACTIONS (4)
  - Headache [Not Recovered/Not Resolved]
  - Nausea [Not Recovered/Not Resolved]
  - Vomiting [Not Recovered/Not Resolved]
  - Visual impairment [Not Recovered/Not Resolved]
